FAERS Safety Report 18526804 (Version 1)
Quarter: 2020Q4

REPORT INFORMATION
  Report Type: Spontaneous
  Country: DE (occurrence: DE)
  Receive Date: 20201120
  Receipt Date: 20201120
  Transmission Date: 20210114
  Serious: Yes (Life-Threatening, Hospitalization, Other)
  Sender: FDA-Public Use
  Company Number: DE-GLAXOSMITHKLINE-DE2020227166

PATIENT
  Age: 81 Year
  Sex: Male

DRUGS (6)
  1. PARACODIN [Concomitant]
     Indication: COUGH
  2. ATROVENT LS [Concomitant]
     Indication: ASTHMA
     Dosage: 2 DF, QD (IN THE MORNING AND IN THE EVENING)
     Route: 065
     Dates: start: 20201029, end: 20201103
  3. SULTANOL [Suspect]
     Active Substance: ALBUTEROL SULFATE
     Indication: ASTHMA
     Dosage: 2 DF, QD (IN THE MORNING AND IN THE EVENING)
     Route: 065
     Dates: start: 20201020
  4. SULTANOL [Suspect]
     Active Substance: ALBUTEROL SULFATE
     Indication: COUGH
     Dosage: 2 DF, QD (IN THE MORNING AND IN THE EVENING)
     Route: 065
     Dates: end: 202011
  5. PARACODIN [Concomitant]
     Indication: ASTHMA
     Dosage: UNK (TO NIGHT)
     Route: 065
     Dates: start: 2020
  6. SULTANOL [Suspect]
     Active Substance: ALBUTEROL SULFATE
     Dosage: UNK
     Route: 065

REACTIONS (4)
  - Swollen tongue [Recovered/Resolved]
  - Swelling face [Not Recovered/Not Resolved]
  - Respiration abnormal [Unknown]
  - Blood pressure increased [Unknown]

NARRATIVE: CASE EVENT DATE: 202010
